FAERS Safety Report 8719055 (Version 3)
Quarter: 2013Q4

REPORT INFORMATION
  Report Type: Spontaneous
  Country: US (occurrence: US)
  Receive Date: 20120813
  Receipt Date: 20131031
  Transmission Date: 20140711
  Serious: Yes (Death, Other)
  Sender: FDA-Public Use
  Company Number: US-009507513-1207USA009887

PATIENT
  Age: 74 Year
  Sex: Female

DRUGS (2)
  1. NOROXIN [Suspect]
     Route: 048
  2. SIMVASTATIN [Interacting]

REACTIONS (2)
  - Rhabdomyolysis [Fatal]
  - Drug interaction [Fatal]
